FAERS Safety Report 9776152 (Version 4)
Quarter: 2014Q1

REPORT INFORMATION
  Report Type: Report from Study
  Country: IT (occurrence: IT)
  Receive Date: 20131220
  Receipt Date: 20140306
  Transmission Date: 20141002
  Serious: Yes (Hospitalization, Other)
  Sender: FDA-Public Use
  Company Number: IT-ONYX-2012-0831

PATIENT
  Age: 62 Year
  Sex: Male
  Weight: 82 kg

DRUGS (22)
  1. CARFILZOMIB [Suspect]
     Indication: PLASMA CELL MYELOMA
     Route: 042
     Dates: start: 20111130, end: 20111201
  2. CARFILZOMIB [Suspect]
     Route: 042
     Dates: start: 20111206, end: 20111215
  3. CARFILZOMIB [Suspect]
     Route: 042
     Dates: start: 20120109, end: 20120614
  4. CARFILZOMIB [Suspect]
     Route: 042
     Dates: start: 20120627, end: 20120816
  5. LENALIDOMIDE [Suspect]
     Indication: PLASMA CELL MYELOMA
     Route: 048
     Dates: start: 20111130, end: 20120326
  6. LENALIDOMIDE [Suspect]
     Route: 048
     Dates: start: 20120403, end: 20120407
  7. LENALIDOMIDE [Suspect]
     Route: 048
     Dates: start: 20120409, end: 20120522
  8. LENALIDOMIDE [Suspect]
     Route: 048
     Dates: start: 20120531, end: 20120821
  9. DEXAMETHASONE [Suspect]
     Indication: PLASMA CELL MYELOMA
     Dates: start: 20111130, end: 20120320
  10. DEXAMETHASONE [Suspect]
     Dates: start: 20120403, end: 20120822
  11. ARANESP [Concomitant]
     Indication: ANAEMIA
     Route: 058
     Dates: start: 20120124
  12. BETADINE [Concomitant]
     Indication: PHLEBITIS
     Route: 061
     Dates: start: 20120627, end: 20120808
  13. CIPROXIN [Concomitant]
     Indication: ANTIBIOTIC PROPHYLAXIS
     Route: 048
     Dates: start: 20120726
  14. LANSOPRAZOLO [Concomitant]
     Indication: PROPHYLAXIS
     Route: 048
     Dates: start: 20111128
  15. MYELOSTIM [Concomitant]
     Indication: NEUTROPENIA
     Route: 058
     Dates: start: 20120801, end: 20120815
  16. MYELOSTIM [Concomitant]
     Route: 058
     Dates: start: 20120816, end: 20120818
  17. REPARIL [Concomitant]
     Indication: PHLEBITIS
     Route: 061
     Dates: start: 20120627, end: 20120808
  18. VALACICLOVIR [Concomitant]
     Indication: ANTIVIRAL PROPHYLAXIS
     Route: 048
     Dates: start: 20111128
  19. CLEXANE [Concomitant]
     Indication: ANTICOAGULANT THERAPY
     Route: 058
     Dates: start: 20120713
  20. CLEXANE [Concomitant]
     Indication: ANTIPLATELET THERAPY
  21. AUGMENTIN [Concomitant]
     Indication: FEBRILE NEUTROPENIA
     Route: 048
     Dates: start: 20120904, end: 20120906
  22. THALIDOMIDE [Concomitant]
     Indication: PRODUCT USED FOR UNKNOWN INDICATION

REACTIONS (1)
  - Acute myeloid leukaemia [Not Recovered/Not Resolved]
